FAERS Safety Report 13795555 (Version 2)
Quarter: 2017Q3

REPORT INFORMATION
  Report Type: Not Available
  Country: US (occurrence: US)
  Receive Date: 20170726
  Receipt Date: 20170921
  Transmission Date: 20171127
  Serious: No
  Sender: FDA-Public Use
  Company Number: US-NEUROCRINE BIOSCIENCES INC.-2017NBI00414

PATIENT
  Age: 38 Year
  Sex: Female
  Weight: 59.02 kg

DRUGS (14)
  1. INGREZZA [Suspect]
     Active Substance: VALBENAZINE
     Route: 048
     Dates: start: 20170612
  2. ADDERALL [Concomitant]
     Active Substance: AMPHETAMINE ASPARTATE\AMPHETAMINE SULFATE\DEXTROAMPHETAMINE SACCHARATE\DEXTROAMPHETAMINE SULFATE
  3. INGREZZA [Suspect]
     Active Substance: VALBENAZINE
     Indication: TARDIVE DYSKINESIA
     Route: 048
     Dates: start: 20170601, end: 201706
  4. ACETYLSALICYLIC ACID [Concomitant]
     Active Substance: ASPIRIN
  5. VITAMINS [Concomitant]
     Active Substance: VITAMINS
  6. ALLERGY [Concomitant]
     Active Substance: UNSPECIFIED INGREDIENT
  7. PROZAC [Concomitant]
     Active Substance: FLUOXETINE HYDROCHLORIDE
  8. IMITREX [Concomitant]
     Active Substance: SUMATRIPTAN SUCCINATE
     Indication: MIGRAINE
  9. POTASSIUM CHLORIDE. [Concomitant]
     Active Substance: POTASSIUM CHLORIDE
  10. VITAMIN B12 [Concomitant]
     Active Substance: CYANOCOBALAMIN
  11. BACLOFEN. [Concomitant]
     Active Substance: BACLOFEN
     Indication: PAIN
  12. DICLOFENAC [Concomitant]
     Active Substance: DICLOFENAC
     Indication: PAIN
  13. AMBIEN [Concomitant]
     Active Substance: ZOLPIDEM TARTRATE
  14. VALIUM [Concomitant]
     Active Substance: DIAZEPAM

REACTIONS (13)
  - Diarrhoea [Recovered/Resolved]
  - Insomnia [Not Recovered/Not Resolved]
  - Vomiting [Unknown]
  - Spinal osteoarthritis [Unknown]
  - Arthralgia [Not Recovered/Not Resolved]
  - Headache [Unknown]
  - Confusional state [Unknown]
  - Memory impairment [Unknown]
  - Nausea [Unknown]
  - Hot flush [Not Recovered/Not Resolved]
  - Weight decreased [Unknown]
  - Disorientation [Unknown]
  - Anger [Unknown]

NARRATIVE: CASE EVENT DATE: 20170626
